FAERS Safety Report 11159212 (Version 1)
Quarter: 2015Q2

REPORT INFORMATION
  Report Type: Spontaneous
  Country: US (occurrence: None)
  Receive Date: 20150528
  Receipt Date: 20150528
  Transmission Date: 20150821
  Serious: Yes (Life-Threatening, Hospitalization)
  Sender: FDA-Public Use
  Company Number: 2015GMK014071

PATIENT
  Age: 71 Year
  Sex: Male

DRUGS (1)
  1. NAPROXEN (NAPROXEN) UNKNOWN [Suspect]
     Active Substance: NAPROXEN
     Indication: OSTEOARTHRITIS

REACTIONS (2)
  - Anaemia [None]
  - Thrombocytopenia [None]
